FAERS Safety Report 4918748-9 (Version None)
Quarter: 2006Q1

REPORT INFORMATION
  Report Type: 
  Country: None (occurrence: None)
  Receive Date: 20060221
  Receipt Date: 20060221
  Transmission Date: 20060701
  Serious: Yes (Hospitalization, Disabling)
  Sender: FDA-Public Use
  Company Number: None

PATIENT
  Age: 43 Year
  Sex: Female
  Weight: 125 kg

DRUGS (2)
  1. ACTIVASE [Suspect]
     Indication: DEEP VEIN THROMBOSIS
     Dosage: 2MG/HOUR  IV
     Route: 042
     Dates: start: 20060110, end: 20060112
  2. HEPARIN [Suspect]
     Indication: DEEP VEIN THROMBOSIS
     Dosage: 1880 UNITS/HR  IV
     Route: 042
     Dates: start: 20060109, end: 20060112

REACTIONS (6)
  - CEREBRAL HAEMORRHAGE [None]
  - DEEP VEIN THROMBOSIS [None]
  - GAZE PALSY [None]
  - HEADACHE [None]
  - IMPAIRED DRIVING ABILITY [None]
  - VISUAL DISTURBANCE [None]
